FAERS Safety Report 16347414 (Version 1)
Quarter: 2019Q2

REPORT INFORMATION
  Report Type: Spontaneous
  Country: CA (occurrence: CA)
  Receive Date: 20190523
  Receipt Date: 20190523
  Transmission Date: 20190711
  Serious: Yes (Disabling)
  Sender: FDA-Public Use
  Company Number: CA-TEVA-2019-CA-1051556

PATIENT
  Age: 47 Year
  Sex: Male
  Weight: 86 kg

DRUGS (1)
  1. SILDENAFIL CITRATE. [Suspect]
     Active Substance: SILDENAFIL CITRATE
     Indication: PRODUCT USED FOR UNKNOWN INDICATION
     Route: 048

REACTIONS (7)
  - Confusional state [Recovering/Resolving]
  - Ear discomfort [Recovering/Resolving]
  - Deafness [Recovering/Resolving]
  - Depression [Recovering/Resolving]
  - Insomnia [Recovering/Resolving]
  - Tinnitus [Recovering/Resolving]
  - Visual impairment [Recovering/Resolving]
